FAERS Safety Report 14553778 (Version 1)
Quarter: 2018Q1

REPORT INFORMATION
  Report Type: Spontaneous
  Country: US (occurrence: US)
  Receive Date: 20180217
  Receipt Date: 20180217
  Transmission Date: 20180509
  Serious: Yes (Hospitalization)
  Sender: FDA-Public Use
  Company Number: None

PATIENT
  Age: 70 Year
  Sex: Female

DRUGS (1)
  1. AMPYRA [Suspect]
     Active Substance: DALFAMPRIDINE
     Indication: MULTIPLE SCLEROSIS
     Route: 048
     Dates: start: 20100824

REACTIONS (8)
  - Multiple sclerosis [None]
  - Chest pain [None]
  - Skin abrasion [None]
  - Muscular weakness [None]
  - Escherichia test positive [None]
  - Head injury [None]
  - Urinary tract infection [None]
  - Fall [None]

NARRATIVE: CASE EVENT DATE: 20180126
